FAERS Safety Report 14093097 (Version 2)
Quarter: 2017Q4

REPORT INFORMATION
  Report Type: Spontaneous
  Country: DE (occurrence: DE)
  Receive Date: 20171016
  Receipt Date: 20171115
  Transmission Date: 20180321
  Serious: Yes (Hospitalization)
  Sender: FDA-Public Use
  Company Number: DE-BIOGEN-2017BI00469030

PATIENT
  Age: 44 Year
  Sex: Female

DRUGS (2)
  1. FINGOLIMOD. [Concomitant]
     Active Substance: FINGOLIMOD
     Indication: MULTIPLE SCLEROSIS
     Route: 065
     Dates: start: 201607
  2. TYSABRI [Suspect]
     Active Substance: NATALIZUMAB
     Indication: RELAPSING-REMITTING MULTIPLE SCLEROSIS
     Route: 042
     Dates: start: 2009, end: 201604

REACTIONS (5)
  - Paraparesis [Unknown]
  - Cognitive disorder [Unknown]
  - Urinary tract infection [Unknown]
  - Ophthalmoplegia [Unknown]
  - Multiple sclerosis relapse [Unknown]

NARRATIVE: CASE EVENT DATE: 201406
